FAERS Safety Report 5289734-7 (Version None)
Quarter: 2007Q2

REPORT INFORMATION
  Report Type: 
  Country: None (occurrence: None)
  Receive Date: 20070406
  Receipt Date: 20070329
  Transmission Date: 20071010
  Serious: Yes (Hospitalization)
  Sender: FDA-Public Use
  Company Number: US-AMGEN-STX217594

PATIENT
  Sex: Female

DRUGS (3)
  1. ENBREL [Suspect]
     Indication: RHEUMATOID ARTHRITIS
     Route: 058
     Dates: start: 20050101
  2. METHOTREXATE [Concomitant]
     Route: 065
     Dates: start: 20050101
  3. PLAQUENIL [Concomitant]
     Route: 065
     Dates: start: 19990101

REACTIONS (4)
  - ABSCESS ORAL [None]
  - HERPES ZOSTER [None]
  - KNEE ARTHROPLASTY [None]
  - SALIVARY DUCT OBSTRUCTION [None]
